FAERS Safety Report 4510521-9 (Version None)
Quarter: 2004Q4

REPORT INFORMATION
  Report Type: 
  Country: None (occurrence: None)
  Receive Date: 20041122
  Receipt Date: 20041108
  Transmission Date: 20050328
  Serious: Yes (Hospitalization)
  Sender: FDA-Public Use
  Company Number: USA-2004-0017572

PATIENT
  Sex: Female

DRUGS (1)
  1. SPECTRACEF [Suspect]
     Indication: ANTIBACTERIAL PROPHYLAXIS
     Dosage: 200 MG,

REACTIONS (3)
  - CELLULITIS [None]
  - NAUSEA [None]
  - PYREXIA [None]
